FAERS Safety Report 18078976 (Version 2)
Quarter: 2020Q3

REPORT INFORMATION
  Report Type: Spontaneous
  Country: US (occurrence: US)
  Receive Date: 20200728
  Receipt Date: 20200806
  Transmission Date: 20201103
  Serious: No
  Sender: FDA-Public Use
  Company Number: US-GILEAD-2020-0485442

PATIENT
  Sex: Female

DRUGS (13)
  1. LIPITOR [Interacting]
     Active Substance: ATORVASTATIN CALCIUM
     Indication: PRODUCT USED FOR UNKNOWN INDICATION
     Route: 065
  2. OSCAL [Interacting]
     Active Substance: CALCIUM CARBONATE
     Indication: PRODUCT USED FOR UNKNOWN INDICATION
     Route: 065
  3. ATORVASTATIN [Interacting]
     Active Substance: ATORVASTATIN
     Indication: PRODUCT USED FOR UNKNOWN INDICATION
     Route: 065
  4. LANTUS [Concomitant]
     Active Substance: INSULIN GLARGINE
  5. EPCLUSA [Suspect]
     Active Substance: SOFOSBUVIR\VELPATASVIR
     Indication: CHRONIC HEPATITIS C
     Dosage: 1 DOSAGE FORM, QD
     Route: 048
     Dates: start: 20200709
  6. MIRALAX [Concomitant]
     Active Substance: POLYETHYLENE GLYCOL 3350
  7. METAMUCIL THERAPY FOR REGULARITY [Concomitant]
     Active Substance: PSYLLIUM HUSK
  8. TYLENOL [Concomitant]
     Active Substance: ACETAMINOPHEN
  9. FISH OIL [Concomitant]
     Active Substance: FISH OIL
  10. HUMALOG [Concomitant]
     Active Substance: INSULIN LISPRO
  11. GABAPENTIN. [Concomitant]
     Active Substance: GABAPENTIN
  12. VITAMIN B COMPLEX [Concomitant]
     Active Substance: CYANOCOBALAMIN\DEXPANTHENOL\NIACINAMIDE\PYRIDOXINE HYDROCHLORIDE\RIBOFLAVIN 5^-PHOSPHATE SODIUM\THIAMINE HYDROCHLORIDE\VITAMIN B COMPLEX
  13. MULTI COMPLETE [Concomitant]

REACTIONS (2)
  - Myalgia [Unknown]
  - Drug interaction [Unknown]
